FAERS Safety Report 9261705 (Version 2)
Quarter: 2013Q2

REPORT INFORMATION
  Report Type: Spontaneous
  Country: AE (occurrence: AE)
  Receive Date: 20130429
  Receipt Date: 20130507
  Transmission Date: 20140414
  Serious: Yes (Other)
  Sender: FDA-Public Use
  Company Number: AE-ALEXION-A201300914

PATIENT
  Age: 8 Year
  Sex: Female
  Weight: 16 kg

DRUGS (4)
  1. SOLIRIS 300MG [Suspect]
     Indication: HAEMOLYTIC URAEMIC SYNDROME
     Dosage: UNK
     Route: 042
     Dates: start: 201009, end: 201009
  2. SOLIRIS 300MG [Suspect]
     Dosage: UNK
     Route: 042
     Dates: start: 201010, end: 201010
  3. SOLIRIS 300MG [Suspect]
     Dosage: 300 MG, EVERY 3 WEEKS
     Route: 042
     Dates: start: 20111107, end: 201303
  4. SOLIRIS 300MG [Suspect]
     Dosage: 300 MG, Q2W
     Route: 042
     Dates: start: 201303

REACTIONS (3)
  - Haemolytic uraemic syndrome [Recovering/Resolving]
  - Condition aggravated [Recovering/Resolving]
  - Platelet count decreased [Unknown]
